FAERS Safety Report 17675945 (Version 1)
Quarter: 2020Q2

REPORT INFORMATION
  Report Type: Spontaneous
  Country: US (occurrence: US)
  Receive Date: 20200415
  Receipt Date: 20200415
  Transmission Date: 20200714
  Serious: Yes (Hospitalization)
  Sender: FDA-Public Use
  Company Number: None

PATIENT
  Age: 55 Year
  Sex: Female

DRUGS (3)
  1. VERZENIO [Suspect]
     Active Substance: ABEMACICLIB
     Indication: BREAST CANCER FEMALE
     Route: 048
     Dates: start: 20190227
  2. VERZENIO [Suspect]
     Active Substance: ABEMACICLIB
     Indication: METASTASIS
     Route: 048
     Dates: start: 20190227
  3. VERZENIO [Suspect]
     Active Substance: ABEMACICLIB
     Indication: BONE CANCER
     Route: 048
     Dates: start: 20190227

REACTIONS (2)
  - Rash papular [None]
  - Rash [None]

NARRATIVE: CASE EVENT DATE: 20191228
